FAERS Safety Report 8843412 (Version 1)
Quarter: 2012Q4

REPORT INFORMATION
  Report Type: 
  Country: US (occurrence: US)
  Receive Date: 20121016
  Receipt Date: 20121016
  Transmission Date: 20130627
  Serious: Yes (Other)
  Sender: FDA-Public Use
  Company Number: US-ELI_LILLY_AND_COMPANY-US201210003952

PATIENT
  Sex: Male
  Weight: 83.9 kg

DRUGS (15)
  1. CIALIS [Suspect]
     Indication: ERECTILE DYSFUNCTION
     Dosage: 1 DF, unknown
  2. VIAGRA [Concomitant]
     Indication: ERECTILE DYSFUNCTION
     Dosage: 1 DF, unknown
     Route: 048
  3. ASPIRIN [Concomitant]
     Indication: BACK PAIN
     Dosage: 325 mg, qd
  4. ACETAMINOPHEN [Concomitant]
     Indication: BACK PAIN
     Dosage: 600 mg, qd
  5. OXYBUTYNIN [Concomitant]
     Indication: DYSURIA
     Dosage: 5 mg, tid
  6. JANUVIA [Concomitant]
     Dosage: 100 mg, qd
  7. INSULIN GLARGINE [Concomitant]
     Dosage: 25 u, UNK
  8. FERREX [Concomitant]
     Dosage: 150 mg, bid
  9. DIGOXIN [Concomitant]
     Dosage: 0.25 mg, qd
     Route: 048
  10. NABUMETONE [Concomitant]
     Dosage: 500 mg, bid
     Route: 048
  11. RAMIPRIL [Concomitant]
     Dosage: 2.5 mg, UNK
  12. METOPROLOL SUCCINATE [Concomitant]
     Dosage: 25 mg, qd
     Route: 048
  13. VERAPAMIL [Concomitant]
     Dosage: 180 mg, UNK
     Route: 048
  14. GABAPENTIN [Concomitant]
     Dosage: 300 mg, bid
     Route: 048
  15. NOVOLOG [Concomitant]
     Dosage: 8 u, qd

REACTIONS (1)
  - Prostate cancer [Recovered/Resolved]
